FAERS Safety Report 17976965 (Version 2)
Quarter: 2020Q3

REPORT INFORMATION
  Report Type: Spontaneous
  Country: US (occurrence: US)
  Receive Date: 20200702
  Receipt Date: 20200903
  Transmission Date: 20201103
  Serious: No
  Sender: FDA-Public Use
  Company Number: US-TOLMAR, INC.-20US021661

PATIENT
  Age: 72 Year
  Sex: Male

DRUGS (1)
  1. ELIGARD [Suspect]
     Active Substance: LEUPROLIDE ACETATE
     Indication: PROSTATE CANCER
     Dosage: 22.5 MG, EVERY 13 WEEKS
     Route: 058
     Dates: start: 20200610

REACTIONS (3)
  - Device leakage [None]
  - Intercepted product preparation error [None]
  - Needle issue [None]

NARRATIVE: CASE EVENT DATE: 20200610
